FAERS Safety Report 16284426 (Version 1)
Quarter: 2019Q2

REPORT INFORMATION
  Report Type: Spontaneous
  Country: GB (occurrence: GB)
  Receive Date: 20190508
  Receipt Date: 20190508
  Transmission Date: 20190711
  Serious: Yes (Hospitalization)
  Sender: FDA-Public Use
  Company Number: GB-AUROBINDO-AUR-APL-2019-024518

PATIENT

DRUGS (1)
  1. RISPERIDONE. [Suspect]
     Active Substance: RISPERIDONE
     Indication: PRODUCT USED FOR UNKNOWN INDICATION
     Dosage: 6 MILLIGRAM, DOSAGE FORM: SOLUTION
     Route: 048

REACTIONS (5)
  - Apathy [Unknown]
  - Somnolence [Unknown]
  - Psychiatric symptom [Unknown]
  - Musculoskeletal stiffness [Unknown]
  - Condition aggravated [Unknown]
